FAERS Safety Report 13822585 (Version 1)
Quarter: 2017Q3

REPORT INFORMATION
  Report Type: Spontaneous
  Country: US (occurrence: US)
  Receive Date: 20170801
  Receipt Date: 20170801
  Transmission Date: 20171127
  Serious: Yes (Hospitalization)
  Sender: FDA-Public Use
  Company Number: US-ELI_LILLY_AND_COMPANY-US201707008886

PATIENT
  Age: 27 Year
  Sex: Female

DRUGS (4)
  1. FORTEO [Suspect]
     Active Substance: TERIPARATIDE
     Indication: PRODUCT USED FOR UNKNOWN INDICATION
     Dosage: UNK, DAILY
     Route: 065
  2. ENBREL [Suspect]
     Active Substance: ETANERCEPT
     Dosage: 25 MG, 2/W
     Route: 065
  3. IRON [Concomitant]
     Active Substance: IRON
  4. ENBREL [Suspect]
     Active Substance: ETANERCEPT
     Indication: RHEUMATOID ARTHRITIS
     Dosage: 25 MG, 2/W
     Route: 065
     Dates: start: 2008

REACTIONS (3)
  - Intervertebral disc degeneration [Unknown]
  - Tethered cord syndrome [Unknown]
  - Injection site mass [Unknown]

NARRATIVE: CASE EVENT DATE: 201012
